FAERS Safety Report 9201143 (Version 1)
Quarter: 2013Q2

REPORT INFORMATION
  Report Type: Spontaneous
  Country: AR (occurrence: AR)
  Receive Date: 20130401
  Receipt Date: 20130401
  Transmission Date: 20140414
  Serious: Yes (Other)
  Sender: FDA-Public Use
  Company Number: PHHY2013AR030189

PATIENT
  Sex: Female

DRUGS (1)
  1. DIOVAN [Suspect]
     Indication: HYPERTENSION
     Dosage: 1 DF (160MG), DAILY
     Route: 048

REACTIONS (5)
  - Fall [Recovering/Resolving]
  - Spinal column injury [Recovering/Resolving]
  - Joint injury [Recovering/Resolving]
  - Fibromyalgia [Recovering/Resolving]
  - Pain [Recovering/Resolving]
